FAERS Safety Report 19994814 (Version 2)
Quarter: 2021Q4

REPORT INFORMATION
  Report Type: Spontaneous
  Country: ES (occurrence: ES)
  Receive Date: 20211026
  Receipt Date: 20211028
  Transmission Date: 20220303
  Serious: Yes (Other)
  Sender: FDA-Public Use
  Company Number: ES-PFIZER INC-2021830098

PATIENT
  Age: 46 Year
  Sex: Female

DRUGS (11)
  1. CYCLOSPORINE [Suspect]
     Active Substance: CYCLOSPORINE
     Indication: Rheumatoid arthritis
     Dosage: 250 MG, DAILY
  2. CYCLOSPORINE [Suspect]
     Active Substance: CYCLOSPORINE
     Dosage: 150 MILLIGRAM, QD
     Dates: start: 199701
  3. METHOTREXATE [Suspect]
     Active Substance: METHOTREXATE
     Indication: Rheumatoid arthritis
     Dosage: 7.5-10MG, WEEKLY
  4. METHOTREXATE [Suspect]
     Active Substance: METHOTREXATE
     Dosage: 10 MG, WEEKLY (DOSE IN THE LAST YEAR)
  5. METHOTREXATE [Suspect]
     Active Substance: METHOTREXATE
     Dosage: UNK(MEAN DOSE; 10.75 MG/WEEK; DOSE INTERVAL: 5-25 MG/WEEK)
     Dates: start: 1991
  6. INDOMETHACIN [Concomitant]
     Active Substance: INDOMETHACIN
     Dosage: UNK
     Dates: start: 1991
  7. FOLIC ACID [Concomitant]
     Active Substance: FOLIC ACID
     Dosage: UNK
     Dates: start: 1991
  8. DEFLAZACORT [Concomitant]
     Active Substance: DEFLAZACORT
     Dosage: 7.5 MILLIGRAM, QD
     Dates: start: 1991
  9. DEFLAZACORT [Concomitant]
     Active Substance: DEFLAZACORT
     Dosage: 30 MILLIGRAM, QD
  10. CHLOROQUINE [Concomitant]
     Active Substance: CHLOROQUINE
     Dosage: UNK
     Dates: start: 1991
  11. MISOPROSTOL [Concomitant]
     Active Substance: MISOPROSTOL
     Dosage: UNK
     Dates: start: 1991

REACTIONS (1)
  - Non-Hodgkin^s lymphoma [Recovered/Resolved]
